FAERS Safety Report 14183568 (Version 1)
Quarter: 2017Q4

REPORT INFORMATION
  Report Type: Spontaneous
  Country: US (occurrence: US)
  Receive Date: 20171113
  Receipt Date: 20171113
  Transmission Date: 20180321
  Serious: No
  Sender: FDA-Public Use
  Company Number: US-AQUA PHARMACEUTICALS-2017AQU000228

PATIENT

DRUGS (1)
  1. VERDESO [Suspect]
     Active Substance: DESONIDE
     Indication: ALOPECIA
     Dosage: UNK
     Route: 061

REACTIONS (4)
  - Product use in unapproved indication [Unknown]
  - Application site reaction [Unknown]
  - Drug dose omission [Unknown]
  - Product physical consistency issue [Unknown]
